FAERS Safety Report 4435326-9 (Version None)
Quarter: 2004Q3

REPORT INFORMATION
  Report Type: 
  Country: None (occurrence: None)
  Receive Date: 20040827
  Receipt Date: 20040629
  Transmission Date: 20050211
  Serious: Yes (Other)
  Sender: FDA-Public Use
  Company Number: US-JNJFOC-20040608607

PATIENT
  Age: 49 Year
  Sex: Female

DRUGS (1)
  1. DURAGESIC [Suspect]
     Route: 062
     Dates: start: 19990101, end: 20040625

REACTIONS (6)
  - BLOOD PRESSURE INCREASED [None]
  - CHEST PAIN [None]
  - DRUG WITHDRAWAL SYNDROME [None]
  - HYPERHIDROSIS [None]
  - RASH [None]
  - SKIN ODOUR ABNORMAL [None]
